APPROVED DRUG PRODUCT: NAPROXEN
Active Ingredient: NAPROXEN
Strength: 500MG
Dosage Form/Route: TABLET;ORAL
Application: A077339 | Product #003
Applicant: L PERRIGO CO
Approved: Apr 27, 2005 | RLD: No | RS: No | Type: DISCN